FAERS Safety Report 8138639-2 (Version None)
Quarter: 2012Q1

REPORT INFORMATION
  Report Type: 
  Country: None (occurrence: None)
  Receive Date: 20120215
  Receipt Date: 20120203
  Transmission Date: 20120608
  Serious: Yes (Life-Threatening, Hospitalization)
  Sender: FDA-Public Use
  Company Number: JP-TEVA-2011004921

PATIENT
  Age: 75 Year
  Sex: Female
  Weight: 38.5 kg

DRUGS (10)
  1. BENDAMUSTINE [Suspect]
     Route: 042
     Dates: start: 20110301, end: 20110302
  2. VORICONAZOLE [Concomitant]
  3. BENDAMUSTINE [Suspect]
     Route: 042
     Dates: start: 20110519, end: 20110520
  4. BENDAMUSTINE [Suspect]
     Route: 042
     Dates: start: 20110421, end: 20110422
  5. SULFAMETHOXAZOLE + TRIMETHOPRIM [Concomitant]
  6. BENDAMUSTINE [Suspect]
     Route: 042
     Dates: start: 20110329, end: 20110330
  7. ACYCLOVIR [Concomitant]
  8. WARFARIN SODIUM [Concomitant]
  9. BENDAMUSTINE [Suspect]
     Indication: B-CELL LYMPHOMA
     Route: 042
     Dates: start: 20110201, end: 20110202
  10. AMIODARONE HYDROCHLORIDE [Concomitant]

REACTIONS (6)
  - PLATELET COUNT DECREASED [None]
  - CYTOMEGALOVIRUS TEST POSITIVE [None]
  - WHITE BLOOD CELL COUNT DECREASED [None]
  - NEUTROPHIL COUNT DECREASED [None]
  - LYMPHOCYTE COUNT DECREASED [None]
  - BRADYCARDIA [None]
